FAERS Safety Report 10583810 (Version 7)
Quarter: 2015Q3

REPORT INFORMATION
  Report Type: Report from Study
  Country: JP (occurrence: JP)
  Receive Date: 20141114
  Receipt Date: 20150804
  Transmission Date: 20151125
  Serious: Yes (Death, Hospitalization)
  Sender: FDA-Public Use
  Company Number: JP-PFIZER INC-2013348275

PATIENT
  Age: 64 Year
  Sex: Male
  Weight: 64 kg

DRUGS (17)
  1. OXINORM [Concomitant]
     Active Substance: OXYCODONE HYDROCHLORIDE
     Dosage: 2.5 MG, AS NEEDED
     Route: 048
     Dates: end: 20131013
  2. NORVASC [Concomitant]
     Active Substance: AMLODIPINE BESYLATE
     Dosage: 2.5 MG, 1X/DAY
     Route: 048
     Dates: start: 20131004, end: 20131202
  3. MYSLEE [Concomitant]
     Active Substance: ZOLPIDEM TARTRATE
     Dosage: 10 MG, 1X/DAY
     Route: 048
     Dates: end: 20140212
  4. XALKORI [Suspect]
     Active Substance: CRIZOTINIB
     Indication: NON-SMALL CELL LUNG CANCER
     Dosage: 250 MG, 2X/DAY
     Route: 048
     Dates: start: 20130708, end: 20130725
  5. RANMARK [Suspect]
     Active Substance: DENOSUMAB
     Dosage: UNK
     Dates: start: 20130705
  6. DIOVAN [Concomitant]
     Active Substance: VALSARTAN
     Dosage: 40 MG, 1X/DAY
     Route: 048
     Dates: start: 20131203, end: 20140115
  7. ONEALFA [Concomitant]
     Active Substance: ALFACALCIDOL
     Dosage: 0.5 UG, 1X/DAY
     Route: 048
     Dates: end: 20131225
  8. OXYCONTIN [Concomitant]
     Active Substance: OXYCODONE HYDROCHLORIDE
     Dosage: 5 MG, 2X/DAY
     Route: 048
     Dates: end: 20130712
  9. XALKORI [Suspect]
     Active Substance: CRIZOTINIB
     Dosage: 200 MG, 2X/DAY
     Route: 048
     Dates: start: 20130821, end: 20131129
  10. NORVASC [Concomitant]
     Active Substance: AMLODIPINE BESYLATE
     Dosage: 5 MG, 1X/DAY
     Route: 048
     Dates: end: 20131003
  11. OXINORM [Concomitant]
     Active Substance: OXYCODONE HYDROCHLORIDE
     Dosage: 2.5 MG, AS NEEDED
     Route: 048
     Dates: start: 20131205, end: 20140212
  12. MAGMITT [Concomitant]
     Active Substance: MAGNESIUM OXIDE
     Dosage: 500 MG, 3X/DAY
     Route: 048
     Dates: end: 20130804
  13. CALTAN [Concomitant]
     Active Substance: CALCIUM CARBONATE
     Dosage: 500 MG, 1X/DAY
     Route: 048
     Dates: end: 20130721
  14. NORVASC [Concomitant]
     Active Substance: AMLODIPINE BESYLATE
     Dosage: 5 MG, 1X/DAY
     Route: 048
     Dates: start: 20131203, end: 20131206
  15. DIOVAN [Concomitant]
     Active Substance: VALSARTAN
     Dosage: 40 MG, 1X/DAY
     Route: 048
     Dates: end: 20131104
  16. NOVAMIN [Concomitant]
     Active Substance: PROCHLORPERAZINE MALEATE
     Dosage: 5 MG, 3X/DAY
     Route: 048
     Dates: end: 20130716
  17. SPIRIVA [Concomitant]
     Active Substance: TIOTROPIUM BROMIDE MONOHYDRATE
     Dosage: 5 ?G, 1X/DAY
     Route: 055
     Dates: end: 20130729

REACTIONS (8)
  - Alanine aminotransferase increased [Recovered/Resolved]
  - Disease progression [Fatal]
  - Aspartate aminotransferase increased [Recovered/Resolved]
  - Hypocalcaemia [Recovered/Resolved]
  - Blood creatinine increased [Recovering/Resolving]
  - Tumour lysis syndrome [Recovered/Resolved]
  - Interstitial lung disease [Recovered/Resolved]
  - Non-small cell lung cancer [Fatal]

NARRATIVE: CASE EVENT DATE: 20130708
